FAERS Safety Report 6382502-4 (Version None)
Quarter: 2009Q3

REPORT INFORMATION
  Report Type: 
  Country: None (occurrence: None)
  Receive Date: 20090930
  Receipt Date: 20090929
  Transmission Date: 20100115
  Serious: Yes (Hospitalization)
  Sender: FDA-Public Use
  Company Number: A0809523A

PATIENT
  Age: 66 Year
  Sex: Female

DRUGS (2)
  1. ALLI [Suspect]
     Route: 048
  2. SIMVASTATIN [Concomitant]
     Route: 048

REACTIONS (5)
  - ABDOMINAL PAIN UPPER [None]
  - DIARRHOEA [None]
  - NAUSEA [None]
  - PAIN [None]
  - PRODUCT QUALITY ISSUE [None]
